FAERS Safety Report 10262432 (Version 1)
Quarter: 2014Q2

REPORT INFORMATION
  Report Type: Spontaneous
  Country: US (occurrence: US)
  Receive Date: 20140626
  Receipt Date: 20140626
  Transmission Date: 20141212
  Serious: No
  Sender: FDA-Public Use
  Company Number: US-ASTRAZENECA-2014SE46664

PATIENT
  Age: 78 Year
  Sex: Male
  Weight: 68.9 kg

DRUGS (9)
  1. NEXIUM 24HR [Suspect]
     Indication: DYSPEPSIA
     Route: 048
     Dates: start: 20140618
  2. NEXIUM 24HR [Suspect]
     Indication: GASTROOESOPHAGEAL REFLUX DISEASE
     Route: 048
     Dates: start: 20140618
  3. NEXIUM 24HR [Suspect]
     Indication: GASTROOESOPHAGEAL REFLUX DISEASE
     Route: 048
     Dates: start: 20140618
  4. ASPIRIN [Concomitant]
     Indication: MYOCARDIAL INFARCTION
  5. CLOPIDOGREL [Concomitant]
     Indication: MYOCARDIAL INFARCTION
  6. ATORVASTATIN [Concomitant]
     Indication: MYOCARDIAL INFARCTION
  7. CARVEDILOL [Concomitant]
     Indication: MYOCARDIAL INFARCTION
  8. ZANTAC [Concomitant]
     Indication: DYSPEPSIA
     Dosage: AT NIGHT
     Dates: start: 20140618
  9. ZANTAC [Concomitant]
     Indication: GASTROOESOPHAGEAL REFLUX DISEASE
     Dosage: AT NIGHT
     Dates: start: 20140618

REACTIONS (3)
  - Psychomotor hyperactivity [Unknown]
  - Nervousness [Unknown]
  - Intentional product misuse [Unknown]
